FAERS Safety Report 16956811 (Version 1)
Quarter: 2019Q4

REPORT INFORMATION
  Report Type: Spontaneous
  Country: IT (occurrence: IT)
  Receive Date: 20191024
  Receipt Date: 20191024
  Transmission Date: 20200122
  Serious: No
  Sender: FDA-Public Use
  Company Number: IT-BEH-2019108539

PATIENT
  Age: 46 Year
  Sex: Female

DRUGS (1)
  1. PRIVIGEN [Suspect]
     Active Substance: HUMAN IMMUNOGLOBULIN G
     Indication: PRODUCT USED FOR UNKNOWN INDICATION
     Dosage: 50 MILLIGRAM, CYCLICAL
     Route: 042

REACTIONS (7)
  - Dyspnoea [Recovering/Resolving]
  - Visual acuity reduced [Recovering/Resolving]
  - Chest discomfort [Recovering/Resolving]
  - Rash [Recovering/Resolving]
  - Balance disorder [Recovering/Resolving]
  - Blood pressure increased [Recovering/Resolving]
  - Dry throat [Recovering/Resolving]

NARRATIVE: CASE EVENT DATE: 20191009
